FAERS Safety Report 10060661 (Version 1)
Quarter: 2014Q2

REPORT INFORMATION
  Report Type: Report from Study
  Country: AR (occurrence: AR)
  Receive Date: 20140404
  Receipt Date: 20140404
  Transmission Date: 20141212
  Serious: Yes (Other)
  Sender: FDA-Public Use
  Company Number: PHHY2014AR041268

PATIENT
  Sex: Male

DRUGS (3)
  1. DIOVAN [Suspect]
     Indication: HYPERTENSION
     Dosage: 160 MG, DAILY
     Route: 048
  2. DIOVAN [Suspect]
     Dosage: 2 DF(160 MG), PRN
     Route: 048
  3. DIOVAN [Suspect]
     Dosage: 160 MG, DAILY
     Route: 048

REACTIONS (2)
  - Cholelithiasis [Not Recovered/Not Resolved]
  - Blood pressure systolic increased [Not Recovered/Not Resolved]
